FAERS Safety Report 25215593 (Version 1)
Quarter: 2025Q2

REPORT INFORMATION
  Report Type: Spontaneous
  Country: US (occurrence: US)
  Receive Date: 20250418
  Receipt Date: 20250418
  Transmission Date: 20250717
  Serious: No
  Sender: Phathom Pharmaceuticals
  Company Number: US-PHATHOM PHARMACEUTICALS INC.-2025PHT00439

PATIENT
  Age: 76 Year
  Sex: Female

DRUGS (1)
  1. VOQUEZNA [Suspect]
     Active Substance: VONOPRAZAN FUMARATE
     Indication: Barrett^s oesophagus
     Dosage: 10 MG, 1X/DAY
     Route: 048
     Dates: start: 20250127, end: 20250215

REACTIONS (5)
  - Headache [Recovered/Resolved]
  - Eructation [Recovered/Resolved]
  - Flatulence [Recovered/Resolved]
  - Abdominal pain upper [Recovered/Resolved]
  - Off label use [Recovered/Resolved]

NARRATIVE: CASE EVENT DATE: 20250127
